FAERS Safety Report 6700206-2 (Version None)
Quarter: 2010Q2

REPORT INFORMATION
  Report Type: 
  Country: None (occurrence: None)
  Receive Date: 20100428
  Receipt Date: 20100416
  Transmission Date: 20101027
  Serious: Yes (Other)
  Sender: FDA-Public Use
  Company Number: JP-PFIZER INC-2010050220

PATIENT
  Age: 20 Year
  Sex: Female

DRUGS (1)
  1. ZITHROMAC SR [Suspect]
     Dosage: 2 MG, 1X/DAY
     Route: 048
     Dates: start: 20100414, end: 20100414

REACTIONS (1)
  - HAEMATURIA [None]
